FAERS Safety Report 4271930-9 (Version None)
Quarter: 2004Q1

REPORT INFORMATION
  Report Type: 
  Country: None (occurrence: None)
  Receive Date: 20040113
  Receipt Date: 20040106
  Transmission Date: 20041129
  Serious: Yes (Death, Other)
  Sender: FDA-Public Use
  Company Number: 200310904BVD

PATIENT
  Age: 72 Year
  Sex: Female
  Weight: 75 kg

DRUGS (3)
  1. AVELOX [Suspect]
     Indication: PNEUMONIA PRIMARY ATYPICAL
     Dosage: INTRAVENOUS
     Route: 042
     Dates: start: 20030824
  2. BINOTAL [Concomitant]
  3. ROCEPHIN [Concomitant]

REACTIONS (12)
  - BRAIN SCAN ABNORMAL [None]
  - CEREBRAL ARTERY EMBOLISM [None]
  - CEREBRAL ISCHAEMIA [None]
  - COAGULOPATHY [None]
  - ENDOCARDITIS [None]
  - HEPATIC FAILURE [None]
  - MULTI-ORGAN FAILURE [None]
  - NEPHROPATHY TOXIC [None]
  - PANCREATIC CARCINOMA [None]
  - PULMONARY HAEMORRHAGE [None]
  - RESPIRATORY FAILURE [None]
  - SEPSIS [None]
